FAERS Safety Report 22111791 (Version 1)
Quarter: 2023Q1

REPORT INFORMATION
  Report Type: Spontaneous
  Country: PL (occurrence: PL)
  Receive Date: 20230318
  Receipt Date: 20230318
  Transmission Date: 20230417
  Serious: Yes (Death, Life-Threatening, Hospitalization, Other)
  Sender: FDA-Public Use
  Company Number: PL-ABBVIE-4345806

PATIENT
  Sex: Male

DRUGS (6)
  1. VENETOCLAX [Suspect]
     Active Substance: VENETOCLAX
     Indication: Chronic lymphocytic leukaemia
     Dosage: 50 MILLIGRAM
     Dates: start: 2022, end: 2022
  2. VENETOCLAX [Suspect]
     Active Substance: VENETOCLAX
     Indication: Chronic lymphocytic leukaemia
     Dosage: 20 MILLIGRAM
     Dates: start: 20220526
  3. VENETOCLAX [Suspect]
     Active Substance: VENETOCLAX
     Indication: Chronic lymphocytic leukaemia
     Dosage: 200 MILLIGRAM
     Dates: start: 2022, end: 2022
  4. VENETOCLAX [Suspect]
     Active Substance: VENETOCLAX
     Indication: Chronic lymphocytic leukaemia
     Dosage: 400 MILLIGRAM
     Dates: start: 2022, end: 2022
  5. VENETOCLAX [Suspect]
     Active Substance: VENETOCLAX
     Indication: Chronic lymphocytic leukaemia
     Dosage: 100 MILLIGRAM
     Dates: start: 2022, end: 2022
  6. RITUXIMAB [Concomitant]
     Active Substance: RITUXIMAB
     Indication: Product used for unknown indication
     Dates: start: 2015

REACTIONS (22)
  - Pyrexia [Recovered/Resolved]
  - Hepatic failure [Not Recovered/Not Resolved]
  - C-reactive protein increased [Recovered/Resolved]
  - Splenomegaly [Unknown]
  - Neutrophil count decreased [Unknown]
  - Productive cough [Unknown]
  - Pyrexia [Unknown]
  - Pancytopenia [Not Recovered/Not Resolved]
  - Interleukin-2 receptor increased [Unknown]
  - Leukopenia [Unknown]
  - Epstein-Barr virus test positive [Unknown]
  - Death [Fatal]
  - Anaemia [Unknown]
  - Blood glucose increased [Unknown]
  - Renal failure [Not Recovered/Not Resolved]
  - Haemophagocytic lymphohistiocytosis [Not Recovered/Not Resolved]
  - Procalcitonin increased [Recovered/Resolved]
  - Respiratory failure [Not Recovered/Not Resolved]
  - Serum ferritin increased [Recovering/Resolving]
  - Haemoglobin decreased [Unknown]
  - Transaminases increased [Unknown]
  - Hyperferritinaemia [Not Recovered/Not Resolved]

NARRATIVE: CASE EVENT DATE: 20220101
